FAERS Safety Report 20154992 (Version 1)
Quarter: 2021Q4

REPORT INFORMATION
  Report Type: Spontaneous
  Country: US (occurrence: None)
  Receive Date: 20211206
  Receipt Date: 20211206
  Transmission Date: 20220303
  Serious: No
  Sender: FDA-Public Use
  Company Number: None

PATIENT
  Age: 55 Year
  Sex: Female
  Weight: 83.91 kg

DRUGS (2)
  1. CASIRIVIMAB [Suspect]
     Active Substance: CASIRIVIMAB
     Indication: Immunodeficiency common variable
     Dosage: FREQUENCY : ONCE;?
     Dates: start: 20211029, end: 20211029
  2. IMDEVIMAB [Suspect]
     Active Substance: IMDEVIMAB
     Dosage: FREQUENCY : ONCE;?
     Route: 030
     Dates: start: 20211029, end: 20211029

REACTIONS (3)
  - Arthralgia [None]
  - Burning sensation [None]
  - Inflammation [None]

NARRATIVE: CASE EVENT DATE: 20211029
